FAERS Safety Report 5366405-X (Version None)
Quarter: 2007Q2

REPORT INFORMATION
  Report Type: 
  Country: None (occurrence: None)
  Receive Date: 20070622
  Receipt Date: 20070614
  Transmission Date: 20071010
  Serious: Yes (Other)
  Sender: FDA-Public Use
  Company Number: PHEH2007US04279

PATIENT
  Age: 69 Year
  Sex: Female

DRUGS (3)
  1. ZELNORM [Suspect]
     Indication: IRRITABLE BOWEL SYNDROME
     Dosage: 6 MG, BID
     Route: 048
     Dates: start: 20050101, end: 20070330
  2. SIMVASTATIN [Concomitant]
     Indication: HYPERLIPIDAEMIA
     Dosage: 40MG QD
     Dates: start: 20060801
  3. PROTONIX [Concomitant]
     Indication: GASTROOESOPHAGEAL REFLUX DISEASE
     Dosage: 40MG QD

REACTIONS (6)
  - CHEST PAIN [None]
  - HYPERCHOLESTEROLAEMIA [None]
  - HYPERTENSION [None]
  - HYPERTRIGLYCERIDAEMIA [None]
  - HYPOTHYROIDISM [None]
  - INFLAMMATION [None]
